FAERS Safety Report 5795665-6 (Version None)
Quarter: 2008Q2

REPORT INFORMATION
  Report Type: 
  Country: None (occurrence: None)
  Receive Date: 20080630
  Receipt Date: 20080618
  Transmission Date: 20081010
  Serious: Yes (Hospitalization)
  Sender: FDA-Public Use
  Company Number: US-PFIZER INC-2008053403

PATIENT
  Sex: Male
  Weight: 86.2 kg

DRUGS (4)
  1. CHANTIX [Suspect]
     Indication: SMOKING CESSATION THERAPY
     Route: 048
  2. CLONAZEPAM [Concomitant]
     Route: 048
  3. SOMA [Concomitant]
     Route: 048
  4. HYDROCODONE [Concomitant]
     Route: 048

REACTIONS (1)
  - CONVULSION [None]
